FAERS Safety Report 8615829-3 (Version None)
Quarter: 2012Q3

REPORT INFORMATION
  Report Type: 
  Country: None (occurrence: None)
  Receive Date: 20120823
  Receipt Date: 20120816
  Transmission Date: 20120928
  Serious: Yes (Other)
  Sender: FDA-Public Use
  Company Number: PHHY2012JP071083

PATIENT
  Age: 82 Year
  Sex: Male

DRUGS (13)
  1. ETHAMBUTOL HYDROCHLORIDE [Concomitant]
     Dosage: 750 MG, UNK
     Route: 048
     Dates: start: 20120718
  2. NORVASC [Concomitant]
     Dosage: 5 MG, UNK
     Route: 048
     Dates: start: 20120710
  3. PYDOXAL [Concomitant]
     Dosage: 50 MG, UNK
     Route: 048
     Dates: start: 20120718
  4. ALLOPURINOL [Concomitant]
     Dosage: 100 MG, UNK
     Route: 048
     Dates: start: 20120710
  5. URALYT [Concomitant]
     Dosage: 2 DF, UNK
     Route: 048
     Dates: start: 20120710
  6. DONEPEZIL HCL [Concomitant]
     Route: 048
     Dates: start: 20120710
  7. DISOPYRAMIDE PHOSPHATE [Concomitant]
     Dosage: 200 MG, UNK
     Route: 048
     Dates: start: 20120710
  8. PLAVIX [Concomitant]
     Dosage: 50 MG, UNK
     Route: 048
  9. RIFAMPICIN [Suspect]
     Indication: MENINGITIS TUBERCULOUS
     Route: 048
     Dates: start: 20120718, end: 20120811
  10. PYRAZINAMIDE [Concomitant]
     Dosage: 1.5 G, UNK
     Route: 048
     Dates: start: 20120718
  11. EBRANTIL [Concomitant]
     Dosage: 30 MG, UNK
     Route: 048
     Dates: start: 20120710
  12. MAGMITT [Concomitant]
     Dosage: 660 MG, UNK
     Route: 048
     Dates: start: 20120710
  13. ISONIAZID [Concomitant]
     Dosage: 400 MG, UNK
     Route: 048
     Dates: start: 20120718

REACTIONS (1)
  - LIVER DISORDER [None]
